FAERS Safety Report 9588066 (Version 1)
Quarter: 2013Q4

REPORT INFORMATION
  Report Type: Spontaneous
  Country: US (occurrence: US)
  Receive Date: 20131003
  Receipt Date: 20131003
  Transmission Date: 20140711
  Serious: No
  Sender: FDA-Public Use
  Company Number: US-AMGEN-USASP2012068005

PATIENT
  Age: 84 Year
  Sex: Female

DRUGS (14)
  1. ENBREL [Suspect]
     Indication: RHEUMATOID ARTHRITIS
     Dosage: 25 MG, 2 TIMES/WK
     Route: 058
     Dates: start: 201106
  2. FORTEO [Concomitant]
     Dosage: UNK
  3. COSOPT [Concomitant]
     Dosage: UNK
  4. LUMIGAN [Concomitant]
     Dosage: 0.01 %, UNK
  5. ALPHAGAN P [Concomitant]
     Dosage: 0.15 %, UNK
  6. BENEFIBER                          /00677201/ [Concomitant]
     Dosage: UNK
  7. LOVASTATIN [Concomitant]
     Dosage: 40 MG, UNK
  8. ASACOL [Concomitant]
     Dosage: 400 MG TABLET- 1200MG TID
     Route: 048
  9. LEVOTHYROXINE                      /00068002/ [Concomitant]
     Dosage: 75 MUG, UNK
  10. COENZYME Q10 [Concomitant]
     Dosage: 100 MG, UNK
  11. VITAMIN D3 [Concomitant]
     Dosage: 1000 UNIT, UNK
  12. VITAMIN B6 [Concomitant]
     Dosage: 50 MG, UNK
  13. ASPIRIN (E.C.) [Concomitant]
     Dosage: 81 MG, UNK
  14. POLYETHYLENE GLYCOL [Concomitant]
     Dosage: 1000 PD, UNK

REACTIONS (1)
  - Alopecia [Not Recovered/Not Resolved]
